FAERS Safety Report 8625987-2 (Version None)
Quarter: 2012Q3

REPORT INFORMATION
  Report Type: 
  Country: None (occurrence: None)
  Receive Date: 20120827
  Receipt Date: 20120814
  Transmission Date: 20120928
  Serious: Yes (Other)
  Sender: FDA-Public Use
  Company Number: US-FRI-1000037855

PATIENT
  Sex: Female
  Weight: 122.47 kg

DRUGS (10)
  1. HYDROCODONE BITARTRATE AND ACETAMINOPHEN [Concomitant]
     Dosage: 5/325 MG
     Dates: start: 20120604
  2. GEODON [Concomitant]
     Dates: start: 20090831
  3. LEVOTHYROXINE SODIUM [Concomitant]
     Dosage: 150 MCG
     Dates: start: 20111031
  4. WELLBUTRIN XL [Concomitant]
     Dosage: 300 MG
     Dates: start: 20101122
  5. ASPIRIN [Concomitant]
     Dosage: 81 MG
  6. TRAMADOL HCL [Concomitant]
     Dosage: 50 MG
     Dates: start: 20120604
  7. CLONAZEPAM [Concomitant]
     Dosage: 0.5 MG
     Dates: start: 20120305
  8. LISINOPRIL [Concomitant]
     Dosage: 10 MG
     Dates: start: 20120123
  9. VIIBRYD [Suspect]
     Indication: DEPRESSION
     Dosage: 40 MG
     Route: 048
     Dates: start: 20120430, end: 20120608
  10. TERBINAFINE HCL [Concomitant]
     Dosage: 250 MG
     Dates: start: 20120604

REACTIONS (2)
  - OEDEMA PERIPHERAL [None]
  - SUNBURN [None]
